FAERS Safety Report 5012101-8 (Version None)
Quarter: 2006Q2

REPORT INFORMATION
  Report Type: 
  Country: None (occurrence: None)
  Receive Date: 20060526
  Receipt Date: 19990510
  Transmission Date: 20061013
  Serious: Yes (Hospitalization)
  Sender: FDA-Public Use
  Company Number: TOS-000390

PATIENT
  Age: 57 Year
  Sex: Male
  Weight: 93.8 kg

DRUGS (4)
  1. BEXXAR [Suspect]
     Indication: NON-HODGKIN'S LYMPHOMA
     Route: 042
     Dates: start: 19990305, end: 19990305
  2. IODINE I 131 TOSITUMOMAB [Suspect]
     Indication: NON-HODGKIN'S LYMPHOMA
     Route: 042
     Dates: start: 19990305, end: 19990305
  3. BEXXAR [Suspect]
     Route: 042
     Dates: start: 19990312, end: 19990312
  4. IODINE I 131 TOSITUMOMAB [Suspect]
     Route: 042
     Dates: start: 19990312, end: 19990312

REACTIONS (3)
  - BACTERAEMIA [None]
  - PANCYTOPENIA [None]
  - PYREXIA [None]
